FAERS Safety Report 16768156 (Version 1)
Quarter: 2019Q3

REPORT INFORMATION
  Report Type: Report from Study
  Country: US (occurrence: US)
  Receive Date: 20190903
  Receipt Date: 20190903
  Transmission Date: 20191005
  Serious: Yes (Hospitalization, Other)
  Sender: FDA-Public Use
  Company Number: US-BRISTOL-MYERS SQUIBB COMPANY-BMS-2019-083641

PATIENT
  Age: 84 Year
  Sex: Female
  Weight: 58.96 kg

DRUGS (1)
  1. NIVOLUMAB [Suspect]
     Active Substance: NIVOLUMAB
     Indication: SMALL CELL LUNG CANCER
     Dosage: UNK
     Route: 042
     Dates: start: 201809

REACTIONS (21)
  - Encephalitis autoimmune [Unknown]
  - Aphasia [Unknown]
  - Head discomfort [Unknown]
  - Confusional state [Unknown]
  - Asthenia [Unknown]
  - Dementia [Unknown]
  - Gait disturbance [Unknown]
  - Pain of skin [Unknown]
  - Blood count abnormal [Unknown]
  - Dysstasia [Unknown]
  - Screaming [Not Recovered/Not Resolved]
  - Pruritus [Not Recovered/Not Resolved]
  - Type 1 diabetes mellitus [Unknown]
  - Amnesia [Not Recovered/Not Resolved]
  - Platelet count decreased [Unknown]
  - Anal incontinence [Unknown]
  - Hallucination [Unknown]
  - Urinary tract infection [Unknown]
  - Feeling cold [Not Recovered/Not Resolved]
  - Urinary incontinence [Unknown]
  - Speech disorder [Unknown]

NARRATIVE: CASE EVENT DATE: 20190818
